FAERS Safety Report 5321640-1 (Version None)
Quarter: 2007Q1

REPORT INFORMATION
  Report Type: 
  Country: None (occurrence: None)
  Receive Date: 20070220
  Receipt Date: 20061228
  Transmission Date: 20070707
  Serious: No
  Sender: FDA-Public Use
  Company Number: TPA2007A00061

PATIENT
  Age: 42 Year
  Sex: Female

DRUGS (1)
  1. ROZEREM [Suspect]
     Dosage: URETHRAL
     Route: 066

REACTIONS (2)
  - SEDATION [None]
  - SOMNOLENCE [None]
